FAERS Safety Report 9234137 (Version 1)
Quarter: 2013Q2

REPORT INFORMATION
  Report Type: Spontaneous
  Country: NO (occurrence: NO)
  Receive Date: 20130416
  Receipt Date: 20130416
  Transmission Date: 20140414
  Serious: Yes (Congenital Anomaly, Other)
  Sender: FDA-Public Use
  Company Number: NO-ROCHE-1213774

PATIENT
  Sex: 0

DRUGS (1)
  1. DIAZEPAM [Suspect]
     Indication: PRODUCT USED FOR UNKNOWN INDICATION
     Route: 050

REACTIONS (16)
  - Congenital central nervous system anomaly [Unknown]
  - Congenital eye disorder [Unknown]
  - Ear malformation [Unknown]
  - Dysmorphism [Unknown]
  - Congenital anomaly [Unknown]
  - Congenital cardiovascular anomaly [Unknown]
  - Vascular anomaly [Unknown]
  - Respiratory tract malformation [Unknown]
  - Congenital oral malformation [Unknown]
  - Congenital oral malformation [Unknown]
  - Gastrointestinal malformation [Unknown]
  - Congenital genital malformation [Unknown]
  - Congenital musculoskeletal anomaly [Unknown]
  - Trisomy 21 [Unknown]
  - Cytogenetic abnormality [Unknown]
  - Exposure via father [Unknown]
